FAERS Safety Report 4782662-2 (Version None)
Quarter: 2005Q3

REPORT INFORMATION
  Report Type: 
  Country: None (occurrence: None)
  Receive Date: 20050929
  Receipt Date: 20050615
  Transmission Date: 20060218
  Serious: No
  Sender: FDA-Public Use
  Company Number: 407965

PATIENT
  Age: 66 Year
  Sex: Male

DRUGS (9)
  1. COREG [Suspect]
     Dosage: 25MG TWICE PER DAY
     Route: 048
     Dates: start: 20030101
  2. LISINOPRIL [Concomitant]
  3. CALCIUM CHANNEL BLOCKER [Concomitant]
  4. LASIX [Concomitant]
  5. TRIAMTERENE AND HYDROCHLOROTHIAZIDE [Concomitant]
  6. DIGOXIN [Concomitant]
  7. HISTALIX [Concomitant]
  8. ALLOPURINOL [Concomitant]
  9. CELEBREX [Concomitant]

REACTIONS (2)
  - FATIGUE [None]
  - SENSATION OF BLOOD FLOW [None]
